FAERS Safety Report 6868810-9 (Version None)
Quarter: 2010Q3

REPORT INFORMATION
  Report Type: 
  Country: None (occurrence: None)
  Receive Date: 20100722
  Receipt Date: 20080805
  Transmission Date: 20110219
  Serious: No
  Sender: FDA-Public Use
  Company Number: US-PFIZER INC-2008053007

PATIENT
  Sex: Male
  Weight: 92.99 kg

DRUGS (4)
  1. CHANTIX [Suspect]
     Indication: SMOKING CESSATION THERAPY
     Dates: start: 20080620
  2. FELODIPINE [Concomitant]
     Indication: HYPERTENSION
  3. TERAZOSIN HCL [Concomitant]
     Indication: HYPERTENSION
  4. ACETYLSALICYLIC ACID [Concomitant]

REACTIONS (1)
  - DIZZINESS [None]
